FAERS Safety Report 5752108-6 (Version None)
Quarter: 2008Q2

REPORT INFORMATION
  Report Type: 
  Country: None (occurrence: None)
  Receive Date: 20080529
  Receipt Date: 20080522
  Transmission Date: 20081010
  Serious: Yes (Other)
  Sender: FDA-Public Use
  Company Number: FR-WYE-H04246008

PATIENT
  Age: 76 Year
  Sex: Female

DRUGS (8)
  1. OROKEN [Suspect]
     Indication: PYELONEPHRITIS
     Route: 048
     Dates: start: 20080304, end: 20080320
  2. PLAVIX [Concomitant]
     Dosage: UNKNOWN
     Route: 048
  3. DIACEREIN [Concomitant]
     Dosage: UNKNOWN
     Route: 048
  4. LESCOL [Concomitant]
     Dosage: UNKNOWN
     Route: 048
  5. NEBIVOLOL HCL [Concomitant]
     Dosage: UNKNOWN
     Route: 048
  6. PREVISCAN [Interacting]
     Route: 048
     Dates: start: 20080515, end: 20080520
  7. PREVISCAN [Interacting]
     Route: 048
     Dates: start: 20080307, end: 20080313
  8. INNOHEP [Concomitant]
     Dosage: UNKNOWN
     Route: 048

REACTIONS (2)
  - DRUG INTERACTION [None]
  - INTERNATIONAL NORMALISED RATIO INCREASED [None]
